FAERS Safety Report 17651824 (Version 1)
Quarter: 2020Q2

REPORT INFORMATION
  Report Type: Spontaneous
  Country: CN (occurrence: CN)
  Receive Date: 20200409
  Receipt Date: 20200409
  Transmission Date: 20200713
  Serious: Yes (Other)
  Sender: FDA-Public Use
  Company Number: CN-ROCHE-2576590

PATIENT
  Age: 60 Year
  Sex: Male

DRUGS (23)
  1. HERCEPTIN [Suspect]
     Active Substance: TRASTUZUMAB
     Route: 065
     Dates: start: 20190329
  2. NIVOLUMAB [Concomitant]
     Active Substance: NIVOLUMAB
     Route: 065
     Dates: start: 20190126
  3. HERCEPTIN [Suspect]
     Active Substance: TRASTUZUMAB
     Route: 065
     Dates: start: 20181007
  4. APATINIB MESYLATE [Suspect]
     Active Substance: APATINIB
     Indication: GASTRIC CANCER
     Route: 065
     Dates: start: 20181205
  5. TEGAFUR,GIMERACIL AND OTERACIL POTASSIUM [Concomitant]
     Active Substance: GIMERACIL\OTERACIL\TEGAFUR
     Indication: GASTRIC CANCER
     Route: 065
     Dates: start: 20180808
  6. TEGAFUR,GIMERACIL AND OTERACIL POTASSIUM [Concomitant]
     Active Substance: GIMERACIL\OTERACIL\TEGAFUR
     Route: 065
     Dates: start: 20181007
  7. NIVOLUMAB [Concomitant]
     Active Substance: NIVOLUMAB
     Route: 065
     Dates: start: 20181028
  8. CAMRELIZUMAB [Concomitant]
     Active Substance: CAMRELIZUMAB
     Indication: GASTRIC CANCER
     Route: 065
     Dates: start: 20190827
  9. CAMRELIZUMAB [Concomitant]
     Active Substance: CAMRELIZUMAB
     Route: 065
     Dates: start: 20191028
  10. HERCEPTIN [Suspect]
     Active Substance: TRASTUZUMAB
     Indication: GASTRIC CANCER
     Route: 065
     Dates: start: 20180808
  11. HERCEPTIN [Suspect]
     Active Substance: TRASTUZUMAB
     Route: 065
     Dates: start: 20190801
  12. HERCEPTIN [Suspect]
     Active Substance: TRASTUZUMAB
     Route: 065
     Dates: start: 20190827
  13. HERCEPTIN [Suspect]
     Active Substance: TRASTUZUMAB
     Route: 065
     Dates: start: 20190126
  14. APATINIB MESYLATE [Suspect]
     Active Substance: APATINIB
     Route: 065
     Dates: start: 20191028
  15. OXALIPLATIN. [Concomitant]
     Active Substance: OXALIPLATIN
     Route: 065
     Dates: start: 20181007
  16. HERCEPTIN [Suspect]
     Active Substance: TRASTUZUMAB
     Route: 065
     Dates: start: 20181205
  17. HERCEPTIN [Suspect]
     Active Substance: TRASTUZUMAB
     Route: 065
     Dates: start: 20191028
  18. TEGAFUR,GIMERACIL AND OTERACIL POTASSIUM [Concomitant]
     Active Substance: GIMERACIL\OTERACIL\TEGAFUR
     Route: 065
     Dates: start: 20181205
  19. NIVOLUMAB [Concomitant]
     Active Substance: NIVOLUMAB
     Indication: GASTRIC CANCER
     Route: 065
     Dates: start: 20181007
  20. NIVOLUMAB [Concomitant]
     Active Substance: NIVOLUMAB
     Route: 065
     Dates: start: 20181205
  21. OXALIPLATIN. [Concomitant]
     Active Substance: OXALIPLATIN
     Indication: GASTRIC CANCER
     Route: 065
     Dates: start: 20180808
  22. NIVOLUMAB [Concomitant]
     Active Substance: NIVOLUMAB
     Route: 065
     Dates: start: 20190329
  23. PACLITAXEL ALBUMIN [Concomitant]
     Active Substance: PACLITAXEL
     Indication: GASTRIC CANCER
     Route: 065
     Dates: start: 20190329

REACTIONS (2)
  - Myocardial ischaemia [Unknown]
  - Blood pressure increased [Unknown]
